FAERS Safety Report 8189175-9 (Version None)
Quarter: 2012Q1

REPORT INFORMATION
  Report Type: 
  Country: None (occurrence: None)
  Receive Date: 20120307
  Receipt Date: 20120228
  Transmission Date: 20120608
  Serious: Yes (Other)
  Sender: FDA-Public Use
  Company Number: US-RB-035649-12

PATIENT
  Age: 61 Year
  Sex: Female

DRUGS (2)
  1. NOVALOX [Concomitant]
     Indication: MALAISE
  2. MUCINEX DM [Suspect]
     Indication: COUGH
     Route: 048
     Dates: start: 20120225

REACTIONS (1)
  - HAEMOPTYSIS [None]
